FAERS Safety Report 6411363-X (Version None)
Quarter: 2009Q4

REPORT INFORMATION
  Report Type: 
  Country: None (occurrence: None)
  Receive Date: 20091020
  Receipt Date: 20091006
  Transmission Date: 20100525
  Serious: Yes (Other)
  Sender: FDA-Public Use
  Company Number: PAR_03211_2009

PATIENT
  Sex: Female

DRUGS (3)
  1. MINOXIDIL [Suspect]
     Indication: HYPERTENSION
     Dosage: (5 MG QD, AT BEDTIME ORAL)
     Route: 048
     Dates: start: 20090801
  2. CLONIDINE [Concomitant]
  3. CARVEDILOL [Concomitant]

REACTIONS (3)
  - BLOOD PRESSURE INCREASED [None]
  - FLUID RETENTION [None]
  - HAIR GROWTH ABNORMAL [None]
